FAERS Safety Report 16448574 (Version 1)
Quarter: 2019Q2

REPORT INFORMATION
  Report Type: Spontaneous
  Country: US (occurrence: US)
  Receive Date: 20190619
  Receipt Date: 20190619
  Transmission Date: 20190711
  Serious: Yes (Other)
  Sender: FDA-Public Use
  Company Number: US-COLGATE PALMOLIVE COMPANY-20190601608

PATIENT
  Sex: Female

DRUGS (1)
  1. COLGATE MAX FRESH COOL MINT [Suspect]
     Active Substance: SODIUM FLUORIDE
     Indication: DENTAL DISORDER PROPHYLAXIS
     Dosage: UNKNOWN DOSE, BID
     Dates: start: 2015, end: 20190609

REACTIONS (6)
  - Dyspnoea [Recovered/Resolved]
  - Headache [Recovered/Resolved]
  - Dysphagia [Recovered/Resolved]
  - Product label issue [Unknown]
  - Hypoaesthesia oral [Recovered/Resolved]
  - Alopecia [Not Recovered/Not Resolved]
